FAERS Safety Report 9541627 (Version 1)
Quarter: 2013Q3

REPORT INFORMATION
  Report Type: Spontaneous
  Country: US (occurrence: US)
  Receive Date: 20130923
  Receipt Date: 20130923
  Transmission Date: 20140515
  Serious: No
  Sender: FDA-Public Use
  Company Number: US-ROXANE LABORATORIES, INC.-2013-RO-01553RO

PATIENT
  Sex: Male

DRUGS (1)
  1. FLECAINIDE [Suspect]

REACTIONS (2)
  - Diplopia [Unknown]
  - Metamorphopsia [Unknown]
